FAERS Safety Report 12443574 (Version 1)
Quarter: 2016Q2

REPORT INFORMATION
  Report Type: Other
  Country: FR (occurrence: FR)
  Receive Date: 20160607
  Receipt Date: 20160607
  Transmission Date: 20160815
  Serious: Yes (Death, Other)
  Sender: FDA-Public Use
  Company Number: FR-PFM-FR-2016-1769

PATIENT
  Age: 56 Year
  Sex: Female

DRUGS (11)
  1. HALDOL DECANOATE [Suspect]
     Active Substance: HALOPERIDOL DECANOATE
     Indication: PROPHYLAXIS
     Dosage: 1 VIAL INJECTION EVERY 21 DAYS.
     Route: 030
     Dates: end: 20160415
  2. UROMITEXAN [Suspect]
     Active Substance: MESNA
     Indication: PROPHYLAXIS
     Dosage: 330 MG BOLUS + 1330 MG IN CONTINUOUS INFUSION
     Route: 042
     Dates: start: 20160415, end: 20160419
  3. ALDACTONE [Concomitant]
     Active Substance: SPIRONOLACTONE
     Indication: PLEURAL EFFUSION
  4. GRANISETRON B. BRAUN [Suspect]
     Active Substance: GRANISETRON HYDROCHLORIDE
     Indication: PRODUCT USED FOR UNKNOWN INDICATION
     Dosage: 6 MG, QD (1/DAY)
     Route: 042
     Dates: start: 20160415, end: 20160419
  5. MABTHERA [Suspect]
     Active Substance: RITUXIMAB
     Indication: B-CELL LYMPHOMA
     Dosage: 622.5 MG, SINGLE
     Route: 042
     Dates: start: 20160415, end: 20160415
  6. MITOXANTRONE [Suspect]
     Active Substance: MITOXANTRONE HYDROCHLORIDE
     Indication: B-CELL LYMPHOMA
     Dosage: 16.6 MG, SINGLE
     Route: 042
     Dates: start: 20160415, end: 20160415
  7. NAVELBINE [Suspect]
     Active Substance: VINORELBINE TARTRATE
     Indication: B-CELL LYMPHOMA
     Dosage: 41 MG, SINGLE
     Route: 042
     Dates: start: 20160415, end: 20160415
  8. ALDACTONE [Concomitant]
     Active Substance: SPIRONOLACTONE
     Indication: OEDEMA
     Dosage: 50 MG, QD (1/DAY)
     Route: 065
     Dates: start: 20160414
  9. CORTANCYL [Suspect]
     Active Substance: PREDNISONE
     Indication: PRODUCT USED FOR UNKNOWN INDICATION
     Dosage: 60 MG, QD (1/DAY)
     Route: 048
     Dates: start: 20160415, end: 20160419
  10. PYOSTACINE [Suspect]
     Active Substance: PRISTINAMYCIN
     Indication: BACTERIAL TEST POSITIVE
     Dosage: 500 MG, TID (3/DAY)
     Route: 048
     Dates: start: 20160414, end: 20160418
  11. IFOSFAMIDE. [Suspect]
     Active Substance: IFOSFAMIDE
     Indication: B-CELL LYMPHOMA
     Dosage: 1660 MG, QD (1/DAY)
     Route: 042
     Dates: start: 20160415, end: 20160419

REACTIONS (5)
  - Confusional state [Recovered/Resolved]
  - Hyperthermia [None]
  - B-cell lymphoma [None]
  - Malignant neoplasm progression [None]
  - Encephalopathy [None]

NARRATIVE: CASE EVENT DATE: 20160417
